FAERS Safety Report 13296125 (Version 1)
Quarter: 2017Q1

REPORT INFORMATION
  Report Type: Spontaneous
  Country: US (occurrence: US)
  Receive Date: 20170304
  Receipt Date: 20170304
  Transmission Date: 20170428
  Serious: No
  Sender: FDA-Public Use
  Company Number: US-ASTRAZENECA-2017SE23279

PATIENT
  Age: 22090 Day
  Sex: Female
  Weight: 72.1 kg

DRUGS (2)
  1. ALLEGRA [Concomitant]
     Active Substance: FEXOFENADINE HYDROCHLORIDE
     Indication: HYPERSENSITIVITY
     Route: 048
  2. PULMICORT FLEXHALER [Suspect]
     Active Substance: BUDESONIDE
     Indication: ASTHMA EXERCISE INDUCED
     Route: 055

REACTIONS (9)
  - Off label use [Unknown]
  - Intentional product misuse [Unknown]
  - Eye pruritus [Not Recovered/Not Resolved]
  - Lethargy [Recovering/Resolving]
  - Nausea [Recovering/Resolving]
  - Rash [Recovering/Resolving]
  - Rash erythematous [Not Recovered/Not Resolved]
  - Dizziness [Recovering/Resolving]
  - Throat irritation [Unknown]

NARRATIVE: CASE EVENT DATE: 20170220
